FAERS Safety Report 24071495 (Version 3)
Quarter: 2024Q3

REPORT INFORMATION
  Report Type: Report from Study
  Country: US (occurrence: US)
  Receive Date: 20240710
  Receipt Date: 20240710
  Transmission Date: 20241016
  Serious: No
  Sender: ROCHE
  Company Number: US-ROCHE-3510414

PATIENT
  Age: 5 Year
  Sex: Female
  Weight: 19.5 kg

DRUGS (5)
  1. EVRYSDI [Suspect]
     Active Substance: RISDIPLAM
     Indication: Spinal muscular atrophy
     Route: 048
     Dates: start: 20210802
  2. EVRYSDI [Suspect]
     Active Substance: RISDIPLAM
     Indication: Spinal muscular atrophy
     Route: 048
  3. EVRYSDI [Suspect]
     Active Substance: RISDIPLAM
     Route: 048
  4. CHOLECALCIFEROL [Concomitant]
     Active Substance: CHOLECALCIFEROL
  5. POLYETHYLENE GLYCOL [Concomitant]
     Active Substance: POLYETHYLENE GLYCOL

REACTIONS (9)
  - Malaise [Recovering/Resolving]
  - Vomiting [Recovering/Resolving]
  - Ear infection [Recovering/Resolving]
  - Off label use [Unknown]
  - Sleep apnoea syndrome [Unknown]
  - Blood alkaline phosphatase increased [Unknown]
  - Blood bilirubin decreased [Unknown]
  - Bilirubin conjugated decreased [Unknown]
  - Developmental delay [Unknown]

NARRATIVE: CASE EVENT DATE: 20240204
